FAERS Safety Report 13386985 (Version 7)
Quarter: 2020Q4

REPORT INFORMATION
  Report Type: Spontaneous
  Country: US (occurrence: US)
  Receive Date: 20170330
  Receipt Date: 20201124
  Transmission Date: 20210113
  Serious: Yes (Congenital Anomaly, Other)
  Sender: FDA-Public Use
  Company Number: PHEH2017US009051

PATIENT
  Sex: Female

DRUGS (2)
  1. ZOFRAN [Suspect]
     Active Substance: ONDANSETRON HYDROCHLORIDE
     Indication: FOETAL EXPOSURE DURING PREGNANCY
     Route: 064
  2. ONDANSETRON [Suspect]
     Active Substance: ONDANSETRON
     Indication: FOETAL EXPOSURE DURING PREGNANCY
     Dosage: MOTHER DOSE: 04 MG, Q6H
     Route: 064

REACTIONS (16)
  - Left-to-right cardiac shunt [Unknown]
  - Right ventricular hypertrophy [Unknown]
  - Atrial septal defect [Unknown]
  - Apnoea [Unknown]
  - Failure to thrive [Unknown]
  - Right ventricular dilatation [Unknown]
  - Injury [Unknown]
  - Decreased appetite [Unknown]
  - Cyanosis [Unknown]
  - Cardiomegaly [Unknown]
  - Dyspnoea [Unknown]
  - Right atrial dilatation [Unknown]
  - Foetal exposure during pregnancy [Unknown]
  - Cardiac murmur [Unknown]
  - Tachypnoea [Unknown]
  - Dermatitis diaper [Unknown]
